FAERS Safety Report 16877744 (Version 1)
Quarter: 2019Q4

REPORT INFORMATION
  Report Type: Spontaneous
  Country: US (occurrence: US)
  Receive Date: 20191002
  Receipt Date: 20191002
  Transmission Date: 20200122
  Serious: Yes (Hospitalization)
  Sender: FDA-Public Use
  Company Number: US-PARI RESPIRATORY EQUIPMENT, INC.-2019PAR00095

PATIENT
  Age: 7 Year
  Sex: Female

DRUGS (9)
  1. CREON [Concomitant]
     Active Substance: PANCRELIPASE AMYLASE\PANCRELIPASE LIPASE\PANCRELIPASE PROTEASE
  2. AZITHROMYCIN ANHYDROUS. [Concomitant]
     Active Substance: AZITHROMYCIN ANHYDROUS
  3. CLINDAMYCIN. [Concomitant]
     Active Substance: CLINDAMYCIN
  4. CIPRO [Concomitant]
     Active Substance: CIPROFLOXACIN HYDROCHLORIDE
  5. SULFATRIM [Concomitant]
     Active Substance: SULFAMETHOXAZOLE\TRIMETHOPRIM
  6. PREDNISOLONE SODIUM PHOSPHATE. [Concomitant]
     Active Substance: PREDNISOLONE SODIUM PHOSPHATE
  7. PULMOZYME [Concomitant]
     Active Substance: DORNASE ALFA
  8. PROAIR HFA [Concomitant]
     Active Substance: ALBUTEROL SULFATE
  9. KITABIS PAK [Suspect]
     Active Substance: TOBRAMYCIN
     Dosage: 5 ML, 2X/DAY (EVERY 12 HOURS FOR 28 DAYS)

REACTIONS (1)
  - Hospitalisation [Recovered/Resolved]

NARRATIVE: CASE EVENT DATE: 20190703
